FAERS Safety Report 5899067-3 (Version None)
Quarter: 2008Q3

REPORT INFORMATION
  Report Type: 
  Country: None (occurrence: None)
  Receive Date: 20080925
  Receipt Date: 20080919
  Transmission Date: 20090109
  Serious: Yes (Disabling, Other)
  Sender: FDA-Public Use
  Company Number: US-PFIZER INC-2008079387

PATIENT
  Sex: Male
  Weight: 81.818 kg

DRUGS (1)
  1. LIPITOR [Suspect]
     Indication: BLOOD CHOLESTEROL INCREASED
     Dosage: TEXT:ONCE DAILY
     Dates: start: 19960101, end: 20030101

REACTIONS (7)
  - ACTIVITIES OF DAILY LIVING IMPAIRED [None]
  - DISABILITY [None]
  - GAIT DISTURBANCE [None]
  - HYPOTONIA [None]
  - MUSCULAR WEAKNESS [None]
  - QUALITY OF LIFE DECREASED [None]
  - TREMOR [None]
